FAERS Safety Report 6008199-0 (Version None)
Quarter: 2008Q4

REPORT INFORMATION
  Report Type: 
  Country: None (occurrence: None)
  Receive Date: 20081217
  Receipt Date: 20080723
  Transmission Date: 20090506
  Serious: No
  Sender: FDA-Public Use
  Company Number: US-ASTRAZENECA-2008UW15302

PATIENT
  Age: 74 Year
  Sex: Female
  Weight: 71.7 kg

DRUGS (9)
  1. CRESTOR [Suspect]
     Indication: BLOOD CHOLESTEROL INCREASED
     Route: 048
     Dates: start: 20080201
  2. TOPROL-XL [Suspect]
     Route: 048
     Dates: start: 20040101
  3. ALTACE [Concomitant]
  4. NORVASC [Concomitant]
  5. NEXIU [Concomitant]
     Dates: start: 20030101
  6. WARFARIN SODIUM [Concomitant]
  7. PULMICORT TBH [Concomitant]
     Dates: start: 20050101
  8. SPIRIVA [Concomitant]
     Route: 055
  9. XALATAN [Concomitant]
     Route: 047

REACTIONS (1)
  - ALOPECIA [None]
